FAERS Safety Report 13100797 (Version 1)
Quarter: 2017Q1

REPORT INFORMATION
  Report Type: Spontaneous
  Country: US (occurrence: US)
  Receive Date: 20170110
  Receipt Date: 20170110
  Transmission Date: 20170428
  Serious: No
  Sender: FDA-Public Use
  Company Number: US-INFO-000259

PATIENT
  Sex: Female

DRUGS (1)
  1. ZOLEDRONIC ACID 5 MG/100 ML [Suspect]
     Active Substance: ZOLEDRONIC ACID
     Indication: OSTEOPOROSIS POSTMENOPAUSAL
     Route: 041
     Dates: start: 20161212

REACTIONS (2)
  - Injection site swelling [Recovered/Resolved]
  - Injection site extravasation [None]

NARRATIVE: CASE EVENT DATE: 20161212
